FAERS Safety Report 5074523-9 (Version None)
Quarter: 2006Q3

REPORT INFORMATION
  Report Type: 
  Country: None (occurrence: None)
  Receive Date: 20060803
  Receipt Date: 20060720
  Transmission Date: 20061208
  Serious: Yes (Other)
  Sender: FDA-Public Use
  Company Number: L06-NLD-02895-01

PATIENT
  Age: 48 Year
  Sex: Male
  Weight: 90 kg

DRUGS (6)
  1. CARBAMAZEPINE [Suspect]
     Indication: POST HERPETIC NEURALGIA
     Dosage: 200 MG QD
     Dates: start: 19980101, end: 19980301
  2. INDINIVIR SULFATE [Suspect]
     Indication: HIV INFECTION
     Dosage: 800 MG TID
     Dates: start: 19970501, end: 19970601
  3. INDINIVIR SULFATE [Suspect]
     Indication: HIV INFECTION
     Dosage: 800 MG TID
     Dates: start: 19971101, end: 19980401
  4. LAMIVUDINE [Concomitant]
  5. ZIDOVUDINE [Concomitant]
  6. OXAZEPAM [Concomitant]

REACTIONS (9)
  - DRUG DOSE OMISSION [None]
  - DRUG INTERACTION [None]
  - DRUG LEVEL DECREASED [None]
  - DRUG RESISTANCE [None]
  - HERPES ZOSTER [None]
  - INADEQUATE ANALGESIA [None]
  - POST HERPETIC NEURALGIA [None]
  - SOMNOLENCE [None]
  - THERAPEUTIC RESPONSE DECREASED [None]
